FAERS Safety Report 26124160 (Version 1)
Quarter: 2025Q4

REPORT INFORMATION
  Report Type: Spontaneous
  Country: EU (occurrence: EU)
  Receive Date: 20251205
  Receipt Date: 20251205
  Transmission Date: 20260117
  Serious: Yes (Death, Other)
  Sender: ASTELLAS
  Company Number: EU-ASTELLAS-2025-AER-065920

PATIENT
  Age: 52 Year
  Sex: Male

DRUGS (4)
  1. GILTERITINIB [Suspect]
     Active Substance: GILTERITINIB
     Indication: Acute myeloid leukaemia recurrent
     Route: 065
     Dates: start: 2023, end: 2023
  2. GILTERITINIB [Suspect]
     Active Substance: GILTERITINIB
     Dosage: ESCALATED DOSE
     Route: 065
     Dates: start: 2023, end: 2023
  3. GILTERITINIB [Suspect]
     Active Substance: GILTERITINIB
     Dosage: REINTRODUCED
     Route: 065
     Dates: start: 2023, end: 2023
  4. GILTERITINIB [Suspect]
     Active Substance: GILTERITINIB
     Dosage: CONTINUED WITH CORTICOSTEROID COVER
     Route: 065
     Dates: start: 2023

REACTIONS (8)
  - Death [Fatal]
  - Febrile neutropenia [Recovering/Resolving]
  - Disease recurrence [Recovering/Resolving]
  - Differentiation syndrome [Unknown]
  - Bone marrow failure [Unknown]
  - Nervous system disorder [Unknown]
  - Central nervous system injury [Unknown]
  - Ventricular dysfunction [Unknown]

NARRATIVE: CASE EVENT DATE: 20230101
